FAERS Safety Report 5834179-1 (Version None)
Quarter: 2008Q3

REPORT INFORMATION
  Report Type: 
  Country: None (occurrence: None)
  Receive Date: 20080731
  Receipt Date: 20080716
  Transmission Date: 20090109
  Serious: Yes (Death, Hospitalization)
  Sender: FDA-Public Use
  Company Number: 2008001497

PATIENT
  Sex: Female
  Weight: 32.7 kg

DRUGS (5)
  1. ERLOTINIB [Suspect]
     Indication: OESOPHAGEAL CARCINOMA
     Dosage: (100 MG,QD) ,ORAL
     Route: 048
     Dates: start: 20080505
  2. BEVACIZUMAB     (SOLUTION) [Suspect]
     Dosage: 15 MG/KG
     Route: 042
     Dates: start: 20080505
  3. PACLITAXEL [Concomitant]
  4. CARBOPLATIN (CARBOPATIN) [Concomitant]
  5. FLUOROURACIL [Concomitant]

REACTIONS (21)
  - BLOOD ALBUMIN DECREASED [None]
  - BLOOD CALCIUM DECREASED [None]
  - BLOOD POTASSIUM DECREASED [None]
  - CLOSTRIDIUM DIFFICILE COLITIS [None]
  - DEHYDRATION [None]
  - DISCOMFORT [None]
  - DRUG TOXICITY [None]
  - DYSPHAGIA [None]
  - FAILURE TO THRIVE [None]
  - HAEMATOCRIT DECREASED [None]
  - HAEMOGLOBIN DECREASED [None]
  - INTERSTITIAL LUNG DISEASE [None]
  - MUCOSAL DRYNESS [None]
  - NONSPECIFIC REACTION [None]
  - OEDEMA [None]
  - PAIN [None]
  - PANCYTOPENIA [None]
  - PNEUMONIA [None]
  - SKIN TURGOR DECREASED [None]
  - TACHYCARDIA [None]
  - WHITE BLOOD CELL COUNT DECREASED [None]
